FAERS Safety Report 4542185-2 (Version None)
Quarter: 2004Q4

REPORT INFORMATION
  Report Type: 
  Country: None (occurrence: None)
  Receive Date: 20041227
  Receipt Date: 20041102
  Transmission Date: 20050328
  Serious: Yes (Hospitalization)
  Sender: FDA-Public Use
  Company Number: DSA_25314_2004

PATIENT
  Age: 73 Year
  Sex: Male

DRUGS (6)
  1. ATIVAN [Suspect]
     Dosage: 1 MG PO
     Route: 048
     Dates: start: 20040901, end: 20040901
  2. BOTOX [Suspect]
     Indication: BLEPHAROSPASM
     Dates: end: 20040916
  3. ATENOLOL [Concomitant]
     Indication: HYPERTENSION
     Dates: end: 20040916
  4. POTASSIUM CHLORIDE [Suspect]
     Dosage: DF Q DAY PO
     Route: 048
     Dates: start: 20040801, end: 20040916
  5. NEXIUM [Suspect]
     Indication: ARTHRALGIA
     Dates: start: 20040801, end: 20040916
  6. PRILOSEC [Suspect]
     Indication: ARTHRALGIA
     Dates: start: 20040901, end: 20040916

REACTIONS (6)
  - ARTERIOSCLEROSIS [None]
  - DRUG INEFFECTIVE [None]
  - PYREXIA [None]
  - RASH GENERALISED [None]
  - RENAL FAILURE [None]
  - TUBULOINTERSTITIAL NEPHRITIS [None]
